FAERS Safety Report 10040233 (Version 1)
Quarter: 2014Q1

REPORT INFORMATION
  Report Type: Report from Study
  Country: US (occurrence: US)
  Receive Date: 20140327
  Receipt Date: 20140327
  Transmission Date: 20141002
  Serious: Yes (Other)
  Sender: FDA-Public Use
  Company Number: US-ROCHE-1366965

PATIENT
  Sex: Female
  Weight: 52.21 kg

DRUGS (4)
  1. ZELBORAF [Suspect]
     Indication: BASAL CELL CARCINOMA
     Dosage: DOSAGE TAKEN : MORNING AND EVENING
     Route: 048
  2. LEVOTHYROXINE [Concomitant]
     Route: 048
  3. DIGOXIN [Concomitant]
     Route: 048
  4. XARELTO [Concomitant]
     Indication: ANTICOAGULANT THERAPY
     Route: 048

REACTIONS (2)
  - Lower extremity mass [Not Recovered/Not Resolved]
  - Mass [Not Recovered/Not Resolved]
